FAERS Safety Report 25517355 (Version 1)
Quarter: 2025Q3

REPORT INFORMATION
  Report Type: Spontaneous
  Country: US (occurrence: US)
  Receive Date: 20250704
  Receipt Date: 20250704
  Transmission Date: 20251021
  Serious: No
  Sender: RADIUS PHARM
  Company Number: US-RADIUS HEALTH INC.-US-RADIUS-25047357

PATIENT
  Sex: Female

DRUGS (1)
  1. TYMLOS [Suspect]
     Active Substance: ABALOPARATIDE
     Indication: Product used for unknown indication
     Dosage: UNK, QD
     Route: 058

REACTIONS (4)
  - Migraine [Recovered/Resolved]
  - Bedridden [Unknown]
  - Nausea [Recovered/Resolved]
  - Heart rate increased [Recovered/Resolved]
